FAERS Safety Report 10074705 (Version 1)
Quarter: 2014Q2

REPORT INFORMATION
  Report Type: Spontaneous
  Country: US (occurrence: US)
  Receive Date: 20140414
  Receipt Date: 20140414
  Transmission Date: 20141212
  Serious: No
  Sender: FDA-Public Use
  Company Number: US-009507513-1404USA005767

PATIENT
  Age: 18 Year
  Sex: Female

DRUGS (3)
  1. NEXPLANON [Suspect]
     Indication: CONTRACEPTION
     Dosage: LEFT ARM SUBDERMAL
     Route: 059
     Dates: start: 20130828
  2. CELEXA [Concomitant]
  3. TRAZODONE HYDROCHLORIDE [Concomitant]

REACTIONS (8)
  - Unintended pregnancy [Unknown]
  - Pollakiuria [Unknown]
  - Fatigue [Unknown]
  - Dizziness [Unknown]
  - Abdominal pain lower [Unknown]
  - Chest pain [Unknown]
  - Dyspnoea [Unknown]
  - Breast tenderness [Unknown]
